FAERS Safety Report 6517603-0 (Version None)
Quarter: 2009Q4

REPORT INFORMATION
  Report Type: 
  Country: None (occurrence: None)
  Receive Date: 20091224
  Receipt Date: 20091215
  Transmission Date: 20100525
  Serious: Yes (Other)
  Sender: FDA-Public Use
  Company Number: PHHY2009JP55596

PATIENT
  Sex: Male
  Weight: 50 kg

DRUGS (5)
  1. COMTAN CMT+TAB [Suspect]
     Indication: DRUG EFFECT DECREASED
     Dosage: 900MG DAILY
     Route: 048
     Dates: start: 20081126, end: 20081126
  2. COMTAN CMT+TAB [Suspect]
     Dosage: 1600MG DAILY
     Route: 048
     Dates: start: 20081203, end: 20090408
  3. CARBIDOPA AND LEVODOPA [Concomitant]
     Indication: PARKINSON'S DISEASE
     Dosage: UNK
     Route: 048
  4. CELECOXIB [Concomitant]
     Dosage: UNK
     Route: 048
     Dates: start: 20090311, end: 20090408
  5. MYONAL [Concomitant]
     Dosage: UNK
     Route: 048
     Dates: start: 20090311, end: 20090408

REACTIONS (2)
  - AGGRESSION [None]
  - DELIRIUM [None]
